FAERS Safety Report 6974283-8 (Version None)
Quarter: 2010Q3

REPORT INFORMATION
  Report Type: 
  Country: None (occurrence: None)
  Receive Date: 20100909
  Receipt Date: 20100803
  Transmission Date: 20110219
  Serious: Yes (Hospitalization, Other)
  Sender: FDA-Public Use
  Company Number: PHEH2006US11631

PATIENT
  Sex: Female

DRUGS (11)
  1. ZOMETA [Suspect]
  2. AREDIA [Suspect]
  3. OXYCONTIN [Concomitant]
  4. AUGMENTAN ORAL [Concomitant]
     Route: 048
  5. COUMADIN [Concomitant]
  6. HERCEPTIN [Concomitant]
  7. FLONASE [Concomitant]
  8. COMPAZINE [Concomitant]
  9. DECADRON [Concomitant]
  10. ALTACE [Concomitant]
     Dosage: 10 MG, BID
  11. NEURONTIN [Concomitant]

REACTIONS (39)
  - ANAEMIA [None]
  - BRACHIAL PLEXOPATHY [None]
  - BREAST CANCER METASTATIC [None]
  - CARDIAC FAILURE CONGESTIVE [None]
  - CARDIOMEGALY [None]
  - CENTRAL VENOUS CATHETERISATION [None]
  - CHOLELITHIASIS [None]
  - COLPORRHAPHY [None]
  - DYSPNOEA [None]
  - ENTEROCOCCAL INFECTION [None]
  - ESCHERICHIA INFECTION [None]
  - FLUID OVERLOAD [None]
  - HYPERTENSION [None]
  - HYSTERECTOMY [None]
  - JOINT EFFUSION [None]
  - LEFT VENTRICULAR HYPERTROPHY [None]
  - LUNG INFILTRATION [None]
  - LUNG NEOPLASM [None]
  - METASTASES TO CENTRAL NERVOUS SYSTEM [None]
  - METASTASES TO LIVER [None]
  - MITRAL VALVE INCOMPETENCE [None]
  - MUSCULAR WEAKNESS [None]
  - MUSCULOSKELETAL PAIN [None]
  - MYOSITIS [None]
  - OSTEONECROSIS OF JAW [None]
  - PELVIC PAIN [None]
  - PERICARDIAL EFFUSION [None]
  - PLEURAL EFFUSION [None]
  - PNEUMONIA [None]
  - PULMONARY HYPERTENSION [None]
  - PULMONARY OEDEMA [None]
  - RENAL CYST [None]
  - RESPIRATORY FAILURE [None]
  - SALPINGO-OOPHORECTOMY BILATERAL [None]
  - SPINAL COMPRESSION FRACTURE [None]
  - URINE OUTPUT DECREASED [None]
  - UTERINE ATONY [None]
  - UTERINE PROLAPSE [None]
  - VAGINOPLASTY [None]
